FAERS Safety Report 7503749-7 (Version None)
Quarter: 2011Q2

REPORT INFORMATION
  Report Type: 
  Country: None (occurrence: None)
  Receive Date: 20110525
  Receipt Date: 20110517
  Transmission Date: 20111010
  Serious: Yes (Other)
  Sender: FDA-Public Use
  Company Number: JP-B.I. PHARMACEUTICALS,INC./RIDGEFIELD-2011-BP-11493NB

PATIENT
  Age: 75 Year
  Sex: Female

DRUGS (5)
  1. LIPITOR [Concomitant]
     Dosage: 5 MG
     Route: 065
     Dates: start: 20090701
  2. UNISIA [Suspect]
     Dosage: 1 DF
     Route: 065
     Dates: start: 20101224
  3. CARVEDILOL [Concomitant]
     Dosage: 5 MG
     Route: 065
     Dates: start: 20061201
  4. PRADAXA [Suspect]
     Dosage: 220 MG
     Route: 048
     Dates: start: 20110409, end: 20110422
  5. WARFARIN SODIUM [Concomitant]
     Dosage: 2.5 MG
     Route: 065
     Dates: start: 20061201

REACTIONS (2)
  - EROSIVE OESOPHAGITIS [None]
  - GASTRITIS [None]
